FAERS Safety Report 5420904-0 (Version None)
Quarter: 2007Q3

REPORT INFORMATION
  Report Type: 
  Country: None (occurrence: None)
  Receive Date: 20070821
  Receipt Date: 20070813
  Transmission Date: 20080115
  Serious: Yes (Disabling)
  Sender: FDA-Public Use
  Company Number: CA-ASTRAZENECA-2007UW19901

PATIENT
  Age: 46 Year
  Sex: Male

DRUGS (2)
  1. ENTOCORT EC [Suspect]
     Indication: CROHN'S DISEASE
     Route: 048
     Dates: start: 20070812, end: 20070814
  2. GRAVOL TAB [Concomitant]
     Indication: NAUSEA

REACTIONS (3)
  - ABDOMINAL DISTENSION [None]
  - DEPRESSION [None]
  - NAUSEA [None]
